FAERS Safety Report 4966052-5 (Version None)
Quarter: 2006Q2

REPORT INFORMATION
  Report Type: 
  Country: None (occurrence: None)
  Receive Date: 20060407
  Receipt Date: 20060327
  Transmission Date: 20061013
  Serious: Yes (Hospitalization)
  Sender: FDA-Public Use
  Company Number: PHEH2006US04170

PATIENT
  Age: 79 Year
  Sex: Male

DRUGS (4)
  1. CYCLOSPORINE [Suspect]
     Indication: RENAL TRANSPLANT
     Dosage: 400 MG, QD
     Route: 048
     Dates: start: 20050814, end: 20051031
  2. SIMULECT [Concomitant]
     Dates: start: 20050812, end: 20050816
  3. MYCOPHENOLATE MOFETIL [Concomitant]
     Route: 048
     Dates: start: 20050812
  4. PREDNISONE [Concomitant]
     Dates: start: 20050812

REACTIONS (3)
  - BLOOD CREATININE INCREASED [None]
  - HAEMORRHAGIC CYST [None]
  - RENAL CYST [None]
